FAERS Safety Report 5467060-0 (Version None)
Quarter: 2007Q3

REPORT INFORMATION
  Report Type: 
  Country: None (occurrence: None)
  Receive Date: 20070924
  Receipt Date: 20070924
  Transmission Date: 20080115
  Serious: Yes (Hospitalization)
  Sender: FDA-Public Use
  Company Number: None

PATIENT
  Age: 79 Year
  Sex: Male
  Weight: 87.5442 kg

DRUGS (13)
  1. ETANERCEPT 50MG / AMGEN [Suspect]
     Indication: LICHEN PLANUS
     Dosage: 50MG OR 25MG SQ BID
     Route: 058
     Dates: start: 20070417, end: 20070829
  2. ETANERCEPT 50MG / AMGEN [Suspect]
  3. FOLIC ACID [Concomitant]
  4. HYDROCHLOROTHIAZIDE [Concomitant]
  5. OMEPRAZOLE [Concomitant]
  6. LIPITOR [Concomitant]
  7. ASPIRIN [Concomitant]
  8. GLIPIZIDE [Concomitant]
  9. BENAZEPRIL HYDROCHLORIDE [Concomitant]
  10. FELORIPINR [Concomitant]
  11. FLUCONAZOLE [Concomitant]
  12. DETROL LA [Concomitant]
  13. HYCODAN [Concomitant]

REACTIONS (4)
  - COUGH [None]
  - LUNG INFECTION [None]
  - PYREXIA [None]
  - SPUTUM DISCOLOURED [None]
